FAERS Safety Report 6031139-5 (Version None)
Quarter: 2008Q4

REPORT INFORMATION
  Report Type: 
  Country: None (occurrence: None)
  Receive Date: 20081222
  Receipt Date: 20081015
  Transmission Date: 20090506
  Serious: No
  Sender: FDA-Public Use
  Company Number: US-WYE-H06407208

PATIENT
  Age: 52 Year
  Sex: Female
  Weight: 67.19 kg

DRUGS (3)
  1. PRISTIQ [Suspect]
     Indication: DEPRESSION
     Dosage: 50 MG, ORAL
     Route: 048
     Dates: start: 20081014
  2. XANAX [Suspect]
     Indication: FEELING JITTERY
     Dosage: 0.25 MG
  3. BENICAR [Concomitant]

REACTIONS (4)
  - FEELING JITTERY [None]
  - POOR QUALITY SLEEP [None]
  - RESTLESSNESS [None]
  - SOMNOLENCE [None]
